FAERS Safety Report 6428746-4 (Version None)
Quarter: 2009Q4

REPORT INFORMATION
  Report Type: 
  Country: None (occurrence: None)
  Receive Date: 20091105
  Receipt Date: 20091103
  Transmission Date: 20100525
  Serious: Yes (Death, Hospitalization, Other)
  Sender: FDA-Public Use
  Company Number: CO-BRISTOL-MYERS SQUIBB COMPANY-14842157

PATIENT
  Sex: Male

DRUGS (1)
  1. ORENCIA [Suspect]
     Dosage: INTERRUPTED IN APRIL
     Route: 042

REACTIONS (3)
  - DEATH [None]
  - DRUG INEFFECTIVE [None]
  - RENAL FAILURE [None]
